FAERS Safety Report 17996422 (Version 2)
Quarter: 2020Q3

REPORT INFORMATION
  Report Type: Report from Study
  Country: None (occurrence: US)
  Receive Date: 20200709
  Receipt Date: 20200811
  Transmission Date: 20201103
  Serious: Yes (Other)
  Sender: FDA-Public Use
  Company Number: US-ABBVIE-19K-163-2938867-00

PATIENT
  Age: 84 Year
  Sex: Female
  Weight: 60.84 kg

DRUGS (2)
  1. HUMIRA [Suspect]
     Active Substance: ADALIMUMAB
     Indication: RHEUMATOID ARTHRITIS
     Dosage: CITRATE FREE
     Route: 058
     Dates: start: 2016, end: 202004
  2. HUMIRA [Suspect]
     Active Substance: ADALIMUMAB
     Indication: POLYMYALGIA RHEUMATICA

REACTIONS (6)
  - Heart rate decreased [Unknown]
  - Pneumonia [Unknown]
  - Pharyngeal mass [Unknown]
  - Deafness [Unknown]
  - Fall [Unknown]
  - Skin cancer [Unknown]

NARRATIVE: CASE EVENT DATE: 201911
